FAERS Safety Report 4433318-7 (Version None)
Quarter: 2004Q3

REPORT INFORMATION
  Report Type: 
  Country: None (occurrence: None)
  Receive Date: 20040824
  Receipt Date: 20040816
  Transmission Date: 20050211
  Serious: Yes (Death)
  Sender: FDA-Public Use
  Company Number: 8629

PATIENT
  Age: 1 Day

DRUGS (1)
  1. MORPHINE [Suspect]
     Dosage: 15 MG DAILY IV
     Route: 042

REACTIONS (3)
  - ACCIDENTAL OVERDOSE [None]
  - MEDICATION ERROR [None]
  - NEONATAL DISORDER [None]
